FAERS Safety Report 19841262 (Version 1)
Quarter: 2021Q3

REPORT INFORMATION
  Report Type: Spontaneous
  Country: US (occurrence: US)
  Receive Date: 20210915
  Receipt Date: 20210915
  Transmission Date: 20211014
  Serious: No
  Sender: FDA-Public Use
  Company Number: US-JACOBUS PHARMACEUTICAL COMPANY, INC.-2118413

PATIENT
  Age: 55 Year
  Sex: Female

DRUGS (8)
  1. TRAZODONE HYDROCHLORIDE. [Concomitant]
     Active Substance: TRAZODONE HYDROCHLORIDE
  2. VOLTAREN [Concomitant]
     Active Substance: DICLOFENAC SODIUM
  3. XANAX [Concomitant]
     Active Substance: ALPRAZOLAM
  4. LIDODERM 5 [Concomitant]
     Active Substance: LIDOCAINE
  5. MELOXICAM. [Concomitant]
     Active Substance: MELOXICAM
  6. RUZURGI [Suspect]
     Active Substance: AMIFAMPRIDINE
     Indication: MYASTHENIC SYNDROME
     Route: 048
     Dates: start: 20191219
  7. NORCO [Concomitant]
     Active Substance: ACETAMINOPHEN\HYDROCODONE BITARTRATE
  8. LEVOTHYROXINE. [Concomitant]
     Active Substance: LEVOTHYROXINE

REACTIONS (1)
  - Diarrhoea [Unknown]
